FAERS Safety Report 12920401 (Version 1)
Quarter: 2016Q4

REPORT INFORMATION
  Report Type: Report from Study
  Country: US (occurrence: US)
  Receive Date: 20161107
  Receipt Date: 20161107
  Transmission Date: 20170207
  Serious: No
  Sender: FDA-Public Use
  Company Number: US-TEVA-707680USA

PATIENT
  Age: 68 Year
  Sex: Male

DRUGS (1)
  1. COPAXONE [Suspect]
     Active Substance: GLATIRAMER ACETATE
     Indication: MULTIPLE SCLEROSIS
     Route: 058
     Dates: start: 20160323, end: 20160907

REACTIONS (5)
  - Subcorneal pustular dermatosis [Recovering/Resolving]
  - Nuclear magnetic resonance imaging abnormal [Recovering/Resolving]
  - Eating disorder [Recovering/Resolving]
  - Rash pruritic [Recovering/Resolving]
  - Hypoaesthesia [Recovering/Resolving]

NARRATIVE: CASE EVENT DATE: 20160901
